FAERS Safety Report 13484647 (Version 1)
Quarter: 2017Q2

REPORT INFORMATION
  Report Type: Spontaneous
  Country: US (occurrence: US)
  Receive Date: 20170425
  Receipt Date: 20170425
  Transmission Date: 20170830
  Serious: Yes (Other)
  Sender: FDA-Public Use
  Company Number: US-KYOWAKIRIN-2017BKK001166

PATIENT

DRUGS (1)
  1. TOREMIFENE [Suspect]
     Active Substance: TOREMIFENE
     Indication: DESMOID TUMOUR
     Dosage: UNK
     Route: 065
     Dates: start: 20160401, end: 20160601

REACTIONS (6)
  - Malignant neoplasm progression [Unknown]
  - Infection [Unknown]
  - Aspiration [Unknown]
  - Product use in unapproved indication [Recovered/Resolved]
  - Drug administered to patient of inappropriate age [Recovered/Resolved]
  - Desmoid tumour [None]

NARRATIVE: CASE EVENT DATE: 20160401
